FAERS Safety Report 8612518-6 (Version None)
Quarter: 2012Q3

REPORT INFORMATION
  Report Type: 
  Country: None (occurrence: None)
  Receive Date: 20120822
  Receipt Date: 20111004
  Transmission Date: 20120928
  Serious: No
  Sender: FDA-Public Use
  Company Number: US-ASTRAZENECA-2011SE59453

PATIENT
  Age: 65 Year
  Sex: Female
  Weight: 66.2 kg

DRUGS (3)
  1. SYMBICORT [Suspect]
     Indication: CHRONIC OBSTRUCTIVE PULMONARY DISEASE
     Dosage: 160/4.5 MCG 2 PUFFS BID
     Route: 055
  2. DIVAN [Concomitant]
  3. TOPROL-XL [Concomitant]

REACTIONS (2)
  - COUGH [None]
  - DYSPNOEA [None]
